FAERS Safety Report 9522033 (Version 1)
Quarter: 2013Q1

REPORT INFORMATION
  Report Type: Spontaneous
  Country: US (occurrence: None)
  Receive Date: 20130305
  Receipt Date: 20130305
  Transmission Date: 20140127
  Serious: Yes (Hospitalization, Other)
  Sender: FDA-Public Use
  Company Number: 163-21880-12031610

PATIENT
  Age: 67 Year
  Sex: Female
  Weight: 77.57 kg

DRUGS (6)
  1. REVLIMID [Suspect]
     Indication: PLASMA CELL MYELOMA
     Route: 048
     Dates: start: 20111130
  2. ACYCLOVIR (ACICLOVIR) (UNKNOWN) [Concomitant]
  3. CELEBREX (CELECOXIB) (UNKNOWN) [Concomitant]
  4. DEXAMETHASONE (DEXAMETHASONE) (UNKNOWN) [Concomitant]
  5. GABAPENTIN (GABAPENTIN) (UNKNOWN) (GABAPENTIN) [Concomitant]
  6. OXYCODONE (OXYCODONE) (UNKNOWN) (OXYCODONE) [Concomitant]

REACTIONS (1)
  - Thrombosis [None]
